FAERS Safety Report 9643050 (Version 1)
Quarter: 2013Q4

REPORT INFORMATION
  Report Type: Spontaneous
  Country: CA (occurrence: CA)
  Receive Date: 20131024
  Receipt Date: 20131024
  Transmission Date: 20140711
  Serious: Yes (Hospitalization)
  Sender: FDA-Public Use
  Company Number: CA-JNJFOC-20131011402

PATIENT
  Age: 31 Year
  Sex: Male
  Weight: 108.86 kg

DRUGS (16)
  1. INVEGA [Suspect]
     Indication: PRODUCT USED FOR UNKNOWN INDICATION
     Route: 048
  2. RISPERDAL [Suspect]
     Indication: BIPOLAR DISORDER
     Dosage: 1MG AM AND 3.5 MG HS
     Route: 048
     Dates: start: 20110120, end: 20110121
  3. RISPERDAL [Suspect]
     Indication: BIPOLAR DISORDER
     Dosage: 1 MG AM AND 3 MG HS
     Route: 048
     Dates: start: 20110118, end: 20110119
  4. RISPERDAL [Suspect]
     Indication: BIPOLAR DISORDER
     Route: 048
     Dates: start: 20110104, end: 20110109
  5. RISPERDAL [Suspect]
     Indication: BIPOLAR DISORDER
     Dosage: 1MG AM AND 3.5 MG HS
     Route: 048
     Dates: start: 20110112, end: 20110117
  6. RISPERDAL [Suspect]
     Indication: BIPOLAR DISORDER
     Dosage: 1 MG AM AND 2 MG HS
     Route: 048
     Dates: start: 20110110, end: 20110111
  7. RISPERIDONE [Suspect]
     Indication: BIPOLAR DISORDER
     Dosage: HS
     Route: 048
     Dates: start: 20110104, end: 20110121
  8. AVAPRO [Concomitant]
     Dosage: DIE
     Route: 065
  9. LITHIUM [Concomitant]
     Dosage: HS
     Route: 065
  10. TYLENOL [Concomitant]
     Dosage: PRN
     Route: 065
  11. ZANTAC [Concomitant]
     Route: 065
  12. RESTORIL [Concomitant]
     Dosage: HS
     Route: 065
  13. ATIVAN [Concomitant]
     Dosage: PRN, (PRENSIT TID)
     Route: 065
  14. COLACE [Concomitant]
     Dosage: PRN
     Route: 065
  15. SENOKOT [Concomitant]
     Dosage: PRN
     Route: 065
  16. COGENTIN [Concomitant]
     Route: 065

REACTIONS (1)
  - Rhabdomyolysis [Unknown]
